FAERS Safety Report 8172420-3 (Version None)
Quarter: 2012Q1

REPORT INFORMATION
  Report Type: 
  Country: None (occurrence: None)
  Receive Date: 20120224
  Receipt Date: 20120224
  Transmission Date: 20120608
  Serious: No
  Sender: FDA-Public Use
  Company Number: None

PATIENT
  Sex: Male

DRUGS (1)
  1. NEXAVAR [Suspect]
     Dosage: 200 MG PO TAKE 1 TABLET BY MOUTH TWICE A DAY
     Route: 048
     Dates: start: 20110823

REACTIONS (1)
  - BLOOD PRESSURE INCREASED [None]
